FAERS Safety Report 21449842 (Version 2)
Quarter: 2022Q4

REPORT INFORMATION
  Report Type: Report from Study
  Country: US (occurrence: US)
  Receive Date: 20221013
  Receipt Date: 20221217
  Transmission Date: 20230113
  Serious: Yes (Hospitalization)
  Sender: FDA-Public Use
  Company Number: US-TAKEDA-2022TUS065389

PATIENT
  Sex: Male

DRUGS (12)
  1. TEDUGLUTIDE [Suspect]
     Active Substance: TEDUGLUTIDE
     Indication: Short-bowel syndrome
     Dosage: 1.15 MILLIGRAM, QD
     Route: 058
     Dates: start: 202106
  2. TEDUGLUTIDE [Suspect]
     Active Substance: TEDUGLUTIDE
     Indication: Short-bowel syndrome
     Dosage: 1.15 MILLIGRAM, QD
     Route: 058
     Dates: start: 202106
  3. TEDUGLUTIDE [Suspect]
     Active Substance: TEDUGLUTIDE
     Indication: Short-bowel syndrome
     Dosage: 1.15 MILLIGRAM, QD
     Route: 058
     Dates: start: 202106
  4. TEDUGLUTIDE [Suspect]
     Active Substance: TEDUGLUTIDE
     Indication: Short-bowel syndrome
     Dosage: 1.15 MILLIGRAM, QD
     Route: 058
     Dates: start: 202106
  5. TEDUGLUTIDE [Suspect]
     Active Substance: TEDUGLUTIDE
     Dosage: 1.15 MILLIGRAM, QD
     Route: 058
     Dates: start: 202208
  6. TEDUGLUTIDE [Suspect]
     Active Substance: TEDUGLUTIDE
     Dosage: 1.15 MILLIGRAM, QD
     Route: 058
     Dates: start: 202208
  7. TEDUGLUTIDE [Suspect]
     Active Substance: TEDUGLUTIDE
     Dosage: 1.15 MILLIGRAM, QD
     Route: 058
     Dates: start: 202208
  8. TEDUGLUTIDE [Suspect]
     Active Substance: TEDUGLUTIDE
     Dosage: 1.15 MILLIGRAM, QD
     Route: 058
     Dates: start: 202208
  9. TEDUGLUTIDE [Suspect]
     Active Substance: TEDUGLUTIDE
     Dosage: 1.15 MILLIGRAM, QD
     Route: 058
     Dates: start: 20220808
  10. TEDUGLUTIDE [Suspect]
     Active Substance: TEDUGLUTIDE
     Dosage: 1.15 MILLIGRAM, QD
     Route: 058
     Dates: start: 20220808
  11. TEDUGLUTIDE [Suspect]
     Active Substance: TEDUGLUTIDE
     Dosage: 1.15 MILLIGRAM, QD
     Route: 058
     Dates: start: 20220808
  12. TEDUGLUTIDE [Suspect]
     Active Substance: TEDUGLUTIDE
     Dosage: 1.15 MILLIGRAM, QD
     Route: 058
     Dates: start: 20220808

REACTIONS (3)
  - Hospitalisation [Unknown]
  - Product dose omission issue [Unknown]
  - Product distribution issue [Unknown]
